FAERS Safety Report 17860480 (Version 1)
Quarter: 2020Q2

REPORT INFORMATION
  Report Type: Other
  Country: IL (occurrence: IL)
  Receive Date: 20200604
  Receipt Date: 20200604
  Transmission Date: 20200714
  Serious: Yes (Life-Threatening, Other)
  Sender: FDA-Public Use
  Company Number: IL-TARO-2020TAR01028

PATIENT
  Age: 45 Year
  Sex: Male

DRUGS (1)
  1. COUMADIN [Suspect]
     Active Substance: WARFARIN SODIUM
     Indication: CARDIAC VALVE REPLACEMENT COMPLICATION
     Dosage: UNK
     Route: 048

REACTIONS (2)
  - Cerebrovascular accident [Unknown]
  - Basal ganglia haemorrhage [Unknown]
